FAERS Safety Report 6370168-9 (Version None)
Quarter: 2009Q3

REPORT INFORMATION
  Report Type: 
  Country: None (occurrence: None)
  Receive Date: 20090923
  Receipt Date: 20090914
  Transmission Date: 20100115
  Serious: Yes (Hospitalization)
  Sender: FDA-Public Use
  Company Number: FR-ASTRAZENECA-2009SE13437

PATIENT
  Age: 60 Year
  Sex: Female

DRUGS (3)
  1. CRESTOR [Suspect]
     Route: 048
     Dates: start: 20090501, end: 20090701
  2. CHONDROSULF [Concomitant]
     Indication: OSTEOARTHRITIS
  3. VITAMIN B6 [Concomitant]

REACTIONS (1)
  - DEAFNESS UNILATERAL [None]
